FAERS Safety Report 5108499-2 (Version None)
Quarter: 2006Q3

REPORT INFORMATION
  Report Type: 
  Country: None (occurrence: None)
  Receive Date: 20060913
  Receipt Date: 20060907
  Transmission Date: 20061208
  Serious: Yes (Hospitalization, Other)
  Sender: FDA-Public Use
  Company Number: HQWYE260219JUN06

PATIENT
  Age: 23 Year
  Sex: Female

DRUGS (6)
  1. TACROLIMUS, CONTROL FOR SIROLIMUS (TACROLIMUS, CONTROL FOR SIROLIMUS, [Suspect]
     Indication: PROPHYLAXIS AGAINST TRANSPLANT REJECTION
     Dosage: 1MG 1X PER 12 HR
     Route: 048
     Dates: end: 20060803
  2. MYCOPHENOLATE MOFETIL [Concomitant]
  3. PREDNISONE TAB [Concomitant]
  4. ACYCLOVIR [Concomitant]
  5. LOSARTAN POTASSIUM [Concomitant]
  6. ATORVASTATIN CALCIUM [Concomitant]

REACTIONS (4)
  - ANAEMIA [None]
  - GASTROINTESTINAL STROMAL TUMOUR [None]
  - IMMUNOSUPPRESSION [None]
  - RENAL ATROPHY [None]
